FAERS Safety Report 16682809 (Version 1)
Quarter: 2019Q3

REPORT INFORMATION
  Report Type: Spontaneous
  Country: US (occurrence: US)
  Receive Date: 20190624
  Receipt Date: 20190624
  Transmission Date: 20191004
  Serious: Yes (Hospitalization)
  Sender: FDA-Public Use
  Company Number: None

PATIENT
  Sex: Female

DRUGS (9)
  1. ELIQUIS [Concomitant]
     Active Substance: APIXABAN
  2. NYSTATIN. [Concomitant]
     Active Substance: NYSTATIN
  3. OFLOXACIN. [Concomitant]
     Active Substance: OFLOXACIN
  4. ALECENSA [Suspect]
     Active Substance: ALECTINIB HYDROCHLORIDE
     Indication: LUNG NEOPLASM MALIGNANT
     Route: 048
     Dates: start: 20181219
  5. TYLENOL [Concomitant]
     Active Substance: ACETAMINOPHEN
  6. ALPRAZOLAM. [Concomitant]
     Active Substance: ALPRAZOLAM
  7. NYSTOP [Concomitant]
     Active Substance: NYSTATIN
  8. ZYRTEC [Concomitant]
     Active Substance: CETIRIZINE HYDROCHLORIDE
  9. AMOXCLAV [Concomitant]
     Active Substance: AMOXICILLIN\CLAVULANIC ACID

REACTIONS (8)
  - Headache [None]
  - Muscle spasms [None]
  - Diarrhoea [None]
  - Pain [None]
  - Thrombosis [None]
  - Swelling [None]
  - Pulmonary embolism [None]
  - Fluid retention [None]
